FAERS Safety Report 4365673-0 (Version None)
Quarter: 2004Q2

REPORT INFORMATION
  Report Type: 
  Country: None (occurrence: None)
  Receive Date: 20040527
  Receipt Date: 20040517
  Transmission Date: 20050107
  Serious: Yes (Other)
  Sender: FDA-Public Use
  Company Number: PHBS2004JP06623

PATIENT
  Age: 60 Year
  Sex: Male

DRUGS (2)
  1. DIOVAN [Suspect]
     Dosage: 80 MG/DAY
     Route: 048
  2. LACTEC [Concomitant]
     Route: 042

REACTIONS (8)
  - BLOOD PRESSURE SYSTOLIC DECREASED [None]
  - CARDIAC FAILURE ACUTE [None]
  - COLD SWEAT [None]
  - DISCOMFORT [None]
  - EXCORIATION [None]
  - FALL [None]
  - LOSS OF CONSCIOUSNESS [None]
  - URINARY INCONTINENCE [None]
